FAERS Safety Report 23459990 (Version 1)
Quarter: 2024Q1

REPORT INFORMATION
  Report Type: Spontaneous
  Country: MX (occurrence: MX)
  Receive Date: 20240131
  Receipt Date: 20240131
  Transmission Date: 20240409
  Serious: Yes (Death, Hospitalization, Other)
  Sender: FDA-Public Use
  Company Number: MX-EPICPHARMA-MX-2024EPCLIT00219

PATIENT
  Age: 60 Year
  Sex: Male

DRUGS (1)
  1. LIDOCAINE HYDROCHLORIDE [Suspect]
     Active Substance: LIDOCAINE HYDROCHLORIDE
     Indication: Local anaesthesia
     Dosage: TOTAL OF 800MG
     Route: 065

REACTIONS (12)
  - Toxicity to various agents [Fatal]
  - Altered state of consciousness [Fatal]
  - Respiratory disorder [Fatal]
  - Bradycardia [Fatal]
  - Cardiac arrest [Fatal]
  - Neurological decompensation [Fatal]
  - Complication associated with device [Fatal]
  - Hypotension [Fatal]
  - Cardiac failure [Fatal]
  - Nervousness [Recovered/Resolved]
  - Paraesthesia [Recovered/Resolved]
  - Emotional distress [Recovered/Resolved]
